FAERS Safety Report 26040111 (Version 1)
Quarter: 2025Q4

REPORT INFORMATION
  Report Type: Spontaneous
  Country: GB (occurrence: GB)
  Receive Date: 20251113
  Receipt Date: 20251113
  Transmission Date: 20260118
  Serious: Yes (Hospitalization, Disabling)
  Sender: MICRO LABS LIMITED
  Company Number: GB-MICRO LABS LIMITED-ML2025-05813

PATIENT
  Age: 65 Year
  Sex: Male

DRUGS (1)
  1. DEXAMETHASONE [Suspect]
     Active Substance: DEXAMETHASONE
     Indication: Chronic obstructive pulmonary disease
     Dosage: FIVE SEPARATE COURSES OF ORAL DEXAMETHASONE (8 MG DAILY FOR FIVE DAYS PER COURSE), ADMINISTERED OVER
     Route: 048

REACTIONS (1)
  - Tendon rupture [Recovering/Resolving]
